FAERS Safety Report 21991521 (Version 4)
Quarter: 2023Q1

REPORT INFORMATION
  Report Type: Other
  Country: CA (occurrence: CA)
  Receive Date: 20230214
  Receipt Date: 20230316
  Transmission Date: 20230418
  Serious: Yes (Other)
  Sender: FDA-Public Use
  Company Number: CA-PFIZER INC-202300059073

PATIENT
  Age: 16 Year
  Sex: Male

DRUGS (3)
  1. ADALIMUMAB [Suspect]
     Active Substance: ADALIMUMAB
     Indication: Crohn^s disease
     Dosage: 40 MG
     Route: 065
  2. ADALIMUMAB [Suspect]
     Active Substance: ADALIMUMAB
     Dosage: 40 MG, WEEKLY
     Route: 065
  3. ADALIMUMAB [Suspect]
     Active Substance: ADALIMUMAB
     Indication: Crohn^s disease
     Dosage: 40 MG (SOLUTION SUBCUTANEOUS)
     Route: 065

REACTIONS (5)
  - Crohn^s disease [Unknown]
  - Condition aggravated [Unknown]
  - Drug ineffective [Unknown]
  - Henoch-Schonlein purpura [Unknown]
  - Wrong technique in product usage process [Unknown]
